FAERS Safety Report 4628700-9 (Version None)
Quarter: 2005Q2

REPORT INFORMATION
  Report Type: 
  Country: None (occurrence: None)
  Receive Date: 20050406
  Receipt Date: 20050322
  Transmission Date: 20051028
  Serious: Yes (Other)
  Sender: FDA-Public Use
  Company Number: MEDI-0003061

PATIENT
  Age: 64 Year
  Sex: Female

DRUGS (4)
  1. ETHYOL [Suspect]
     Indication: RADIOTHERAPY
     Dosage: 500 MG, 5 IN 1 WK, INTRAVENOUS
     Route: 042
  2. RADIATION THERAPY [Concomitant]
  3. CISPLATIN [Concomitant]
  4. FLUOROURACIL [Concomitant]

REACTIONS (5)
  - DERMATITIS [None]
  - MUCOSAL INFLAMMATION [None]
  - PHARYNGITIS [None]
  - SOFT TISSUE DISORDER [None]
  - UNEVALUABLE EVENT [None]
